FAERS Safety Report 4401579-6 (Version None)
Quarter: 2004Q3

REPORT INFORMATION
  Report Type: 
  Country: None (occurrence: None)
  Receive Date: 20040719
  Receipt Date: 20040708
  Transmission Date: 20050211
  Serious: Yes (Death)
  Sender: FDA-Public Use
  Company Number: GB-MERCK-0407GBR00113

PATIENT
  Age: 18 Month
  Sex: Female

DRUGS (3)
  1. COSMEGEN [Suspect]
     Indication: NEPHROBLASTOMA
     Route: 042
  2. DOXORUBICIN [Concomitant]
     Indication: NEPHROBLASTOMA
     Route: 065
  3. VINCRISTINE SULFATE [Concomitant]
     Indication: NEPHROBLASTOMA
     Route: 065

REACTIONS (1)
  - HAEMANGIOMA-THROMBOCYTOPENIA SYNDROME [None]
